FAERS Safety Report 4782465-9 (Version None)
Quarter: 2005Q3

REPORT INFORMATION
  Report Type: 
  Country: None (occurrence: None)
  Receive Date: 20050929
  Receipt Date: 20041124
  Transmission Date: 20060218
  Serious: No
  Sender: FDA-Public Use
  Company Number: 389539

PATIENT
  Age: 73 Year
  Sex: Female

DRUGS (11)
  1. COREG [Suspect]
     Dosage: 6.25MG TWICE PER DAY
     Route: 048
     Dates: start: 20041121
  2. PREDNISONE [Concomitant]
  3. NEXIUM [Concomitant]
  4. PLAVIX [Concomitant]
  5. LASIX [Concomitant]
  6. ALDACTONE [Concomitant]
  7. DIGOXIN [Concomitant]
  8. ASPIRIN [Concomitant]
  9. HUMULIN N [Concomitant]
  10. HUMULIN R [Concomitant]
  11. ACTONEL [Concomitant]

REACTIONS (1)
  - MUSCLE SPASMS [None]
